FAERS Safety Report 6376841-0 (Version None)
Quarter: 2009Q3

REPORT INFORMATION
  Report Type: 
  Country: None (occurrence: None)
  Receive Date: 20090924
  Receipt Date: 20090924
  Transmission Date: 20100115
  Serious: No
  Sender: FDA-Public Use
  Company Number: None

PATIENT
  Sex: Female
  Weight: 57.1532 kg

DRUGS (2)
  1. NEURONTIN [Suspect]
     Indication: NEURALGIA
     Dosage: 100/MG TO 1,000 MG DAILY FOR 3 MTHS
     Dates: start: 20030401
  2. . [Concomitant]

REACTIONS (1)
  - UNEVALUABLE EVENT [None]
